FAERS Safety Report 6699904-9 (Version None)
Quarter: 2010Q2

REPORT INFORMATION
  Report Type: 
  Country: None (occurrence: None)
  Receive Date: 20100428
  Receipt Date: 20100426
  Transmission Date: 20101027
  Serious: Yes (Other)
  Sender: FDA-Public Use
  Company Number: US-ASTRAZENECA-2007UW18079

PATIENT
  Age: 16344 Day
  Sex: Female
  Weight: 106.1 kg

DRUGS (20)
  1. SEROQUEL [Suspect]
     Indication: DEPRESSION
     Route: 048
     Dates: start: 19980101, end: 20000101
  2. SEROQUEL [Suspect]
     Dosage: 100/200 MG
     Route: 048
     Dates: start: 20000101, end: 20060101
  3. SEROQUEL [Suspect]
     Route: 048
     Dates: start: 20011016
  4. SEROQUEL [Suspect]
     Route: 048
     Dates: start: 20050101, end: 20080101
  5. EFFEXOR XR [Concomitant]
     Route: 048
     Dates: start: 20011016
  6. LORAZEPAM [Concomitant]
     Route: 048
     Dates: start: 20011016
  7. BENZTROPINE MESYLATE [Concomitant]
     Dates: start: 20011016
  8. HTZ [Concomitant]
     Dates: start: 20020509
  9. METOPROLOL TARTRATE [Concomitant]
     Route: 048
     Dates: start: 20080317
  10. PLAVIX [Concomitant]
     Route: 048
     Dates: start: 20080317
  11. TRICOR [Concomitant]
     Route: 048
     Dates: start: 20080317
  12. NEXIUM [Concomitant]
     Dates: start: 20080317
  13. NASACORT AQ [Concomitant]
     Dosage: STRENGTH-5MCG/ACT AERS DOSE-2 SPRAYS EVERY DAY
     Dates: start: 20080317
  14. SULAR [Concomitant]
     Route: 048
     Dates: start: 20080317
  15. COZAAR [Concomitant]
     Route: 048
     Dates: start: 20080317
  16. CRESTOR [Concomitant]
     Route: 048
     Dates: start: 20080317
  17. DIOVAN [Concomitant]
     Dosage: 160MG-320MG DAILY
     Dates: start: 20051025
  18. LISINOPRIL [Concomitant]
     Dates: start: 20050726
  19. ALLEGRA [Concomitant]
     Dates: start: 20020730
  20. RISPERDAL [Concomitant]
     Indication: DEPRESSION
     Dates: start: 19900101, end: 19900101

REACTIONS (6)
  - BLOOD CHOLESTEROL INCREASED [None]
  - BLOOD TRIGLYCERIDES INCREASED [None]
  - CARDIAC DISORDER [None]
  - GASTROOESOPHAGEAL REFLUX DISEASE [None]
  - HYPERLIPIDAEMIA [None]
  - TYPE 2 DIABETES MELLITUS [None]
